FAERS Safety Report 12217226 (Version 1)
Quarter: 2016Q1

REPORT INFORMATION
  Report Type: Spontaneous
  Country: US (occurrence: None)
  Receive Date: 20160328
  Receipt Date: 20160328
  Transmission Date: 20160526
  Serious: Yes (Disabling)
  Sender: FDA-Public Use
  Company Number: None

PATIENT
  Age: 50 Year
  Sex: Female
  Weight: 99.34 kg

DRUGS (12)
  1. SIMPLY RIGHT ACETAMINOPEHN [Concomitant]
  2. GNC WOMEN^S ULTRA MEGA ACTIVE VITAMINS AND MINERALS [Concomitant]
  3. ULTRA 25 BILLION CFUS PROBIOTIC COMPLEX WITH ENZYMES [Concomitant]
  4. LACTAID [Concomitant]
     Active Substance: LACTASE
  5. GNC TRIPLE STRENGTH FISH OIL 1500 [Concomitant]
  6. LORATADINE. [Concomitant]
     Active Substance: LORATADINE
  7. SIMPLY RIGHT IBUPROFEN [Concomitant]
     Active Substance: IBUPROFEN
  8. GNC VITAMIN C [Concomitant]
  9. MAGNESIUM CITRATE. [Concomitant]
     Active Substance: MAGNESIUM CITRATE
  10. HYOSCYAMINE 0.375MG ER TABLETS, 0.375MG MFG COUNTY LINE [Suspect]
     Active Substance: HYOSCYAMINE
     Indication: IRRITABLE BOWEL SYNDROME
     Dosage: 1 TABLET(S) ONCE A DAY TAKEN BY MOUTH
     Route: 048
     Dates: start: 20151002, end: 20160221
  11. EXCEDRIN MIGRAINE [Concomitant]
     Active Substance: ACETAMINOPHEN\ASPIRIN\CAFFEINE
  12. TURMERIC CURCUMIN [Concomitant]
     Active Substance: TURMERIC

REACTIONS (6)
  - Dizziness [None]
  - Migraine [None]
  - Faeces pale [None]
  - Nausea [None]
  - Feeling abnormal [None]
  - Vertigo [None]

NARRATIVE: CASE EVENT DATE: 20151018
